FAERS Safety Report 10577153 (Version 5)
Quarter: 2016Q1

REPORT INFORMATION
  Report Type: Spontaneous
  Country: US (occurrence: US)
  Receive Date: 20141111
  Receipt Date: 20160104
  Transmission Date: 20160525
  Serious: Yes (Other)
  Sender: FDA-Public Use
  Company Number: US-PFIZER INC-2014306524

PATIENT
  Age: 73 Year
  Sex: Female
  Weight: 54.43 kg

DRUGS (6)
  1. LORAZEPAM. [Concomitant]
     Active Substance: LORAZEPAM
     Indication: SLEEP DISORDER
     Dosage: 2 MG, 1X/DAY (AT NIGHT)
     Route: 048
  2. PREDNISONE. [Concomitant]
     Active Substance: PREDNISONE
     Indication: INFLAMMATORY PAIN
     Dosage: 5 MG, 1X/DAY (AT NIGHT)
     Route: 048
  3. TRAMADOL. [Concomitant]
     Active Substance: TRAMADOL
     Indication: NECK PAIN
     Dosage: 50 MG, AS NEEDED
     Route: 048
  4. PREDNISONE. [Concomitant]
     Active Substance: PREDNISONE
     Indication: RED BLOOD CELL SEDIMENTATION RATE ABNORMAL
  5. XELJANZ [Suspect]
     Active Substance: TOFACITINIB CITRATE
     Indication: RHEUMATOID ARTHRITIS
     Dosage: 5 MG, 2X/DAY (ONE IN MORNING AND ONE IN THE AFTERNOON)(NORMALLY AT 6AM AND 6PM)
     Route: 048
  6. NORVASC [Concomitant]
     Active Substance: AMLODIPINE BESYLATE
     Indication: BLOOD PRESSURE ABNORMAL
     Dosage: 10 MG, 1X/DAY (AT NIGHT)
     Route: 048

REACTIONS (8)
  - Arthropathy [Unknown]
  - Musculoskeletal discomfort [Not Recovered/Not Resolved]
  - Nervousness [Recovered/Resolved]
  - Drug dose omission [Unknown]
  - Somnolence [Unknown]
  - Fall [Recovering/Resolving]
  - Confusional state [Unknown]
  - Stress [Not Recovered/Not Resolved]

NARRATIVE: CASE EVENT DATE: 20150117
